FAERS Safety Report 15398551 (Version 1)
Quarter: 2018Q3

REPORT INFORMATION
  Report Type: Spontaneous
  Country: US (occurrence: US)
  Receive Date: 20180913
  Receipt Date: 20180913
  Transmission Date: 20181010
  Serious: Yes (Other)
  Sender: FDA-Public Use
  Company Number: None

PATIENT
  Age: 52 Year
  Sex: Female
  Weight: 72.63 kg

DRUGS (4)
  1. XIGDUO XR [Suspect]
     Active Substance: DAPAGLIFLOZIN PROPANEDIOL\METFORMIN HYDROCHLORIDE
     Indication: TYPE 2 DIABETES MELLITUS
     Route: 048
     Dates: start: 20170526, end: 20180907
  2. RANITIDINE 300MG DAILY [Concomitant]
     Dates: start: 20180413
  3. LOSARTAN 25 MG DAILY [Concomitant]
     Dates: start: 20170526
  4. VITAMIN D2 50,000 IUS TWICE WEEKLY [Concomitant]
     Dates: start: 20160111

REACTIONS (5)
  - Groin infection [None]
  - Subcutaneous abscess [None]
  - Vulvitis [None]
  - Genital rash [None]
  - Rash [None]

NARRATIVE: CASE EVENT DATE: 20180821
